FAERS Safety Report 8553464-6 (Version None)
Quarter: 2012Q3

REPORT INFORMATION
  Report Type: 
  Country: None (occurrence: None)
  Receive Date: 20120731
  Receipt Date: 20120726
  Transmission Date: 20120928
  Serious: Yes (Death)
  Sender: FDA-Public Use
  Company Number: US-CELGENEUS-163-21880-12072889

PATIENT
  Sex: Female

DRUGS (5)
  1. BENZONATATE [Concomitant]
     Dosage: 200 MILLIGRAM
     Route: 048
  2. CENTRUM [Concomitant]
     Route: 048
  3. VICODIN [Concomitant]
     Dosage: 5-500MG
     Route: 048
  4. REVLIMID [Suspect]
     Indication: LYMPHOMA
     Dosage: 25 MILLIGRAM
     Route: 048
     Dates: start: 20120615
  5. IRON [Concomitant]
     Dosage: 18 MILLIGRAM
     Route: 048

REACTIONS (1)
  - DEATH [None]
